FAERS Safety Report 18177071 (Version 1)
Quarter: 2020Q3

REPORT INFORMATION
  Report Type: Spontaneous
  Country: US (occurrence: US)
  Receive Date: 20200820
  Receipt Date: 20200820
  Transmission Date: 20201103
  Serious: No
  Sender: FDA-Public Use
  Company Number: US-AIMMUNE THERAPEUTICS, INC.-2020AIM00155

PATIENT

DRUGS (5)
  1. PALFORZIA [Suspect]
     Active Substance: PEANUT
     Dosage: 1.5 MG, ONCE
     Route: 048
     Dates: start: 20200513, end: 20200513
  2. PALFORZIA [Suspect]
     Active Substance: PEANUT
     Indication: FOOD ALLERGY
     Dosage: 0.5 MG, ONCE
     Route: 048
     Dates: start: 20200513, end: 20200513
  3. PALFORZIA [Suspect]
     Active Substance: PEANUT
     Dosage: 3 MG
     Route: 048
     Dates: start: 20200513
  4. PALFORZIA [Suspect]
     Active Substance: PEANUT
     Dosage: 1.5 MG, ONCE
     Route: 048
     Dates: start: 20200513, end: 20200513
  5. PALFORZIA [Suspect]
     Active Substance: PEANUT
     Indication: FOOD ALLERGY
     Dosage: 1 MG, ONCE
     Route: 048
     Dates: start: 20200513, end: 20200513

REACTIONS (5)
  - Abdominal pain upper [Recovered/Resolved]
  - Oropharyngeal pain [Recovered/Resolved]
  - Erythema [Recovered/Resolved]
  - Salivary hypersecretion [Recovered/Resolved]
  - Product administered to patient of inappropriate age [Not Recovered/Not Resolved]

NARRATIVE: CASE EVENT DATE: 20200513
